FAERS Safety Report 15744224 (Version 1)
Quarter: 2018Q4

REPORT INFORMATION
  Report Type: Report from Study
  Country: US (occurrence: US)
  Receive Date: 20181220
  Receipt Date: 20181220
  Transmission Date: 20190205
  Serious: Yes (Other)
  Sender: FDA-Public Use
  Company Number: US-EMD SERONO-9058930

PATIENT
  Age: 36 Year
  Sex: Female

DRUGS (1)
  1. REBIF [Suspect]
     Active Substance: INTERFERON BETA-1A
     Indication: PRODUCT USED FOR UNKNOWN INDICATION
     Route: 058
     Dates: start: 20180115

REACTIONS (5)
  - Feeling cold [Unknown]
  - Chills [Unknown]
  - Fall [Unknown]
  - Hypokinesia [Unknown]
  - Paralysis [Unknown]

NARRATIVE: CASE EVENT DATE: 201812
